FAERS Safety Report 6369202-1 (Version None)
Quarter: 2009Q3

REPORT INFORMATION
  Report Type: 
  Country: None (occurrence: None)
  Receive Date: 20090922
  Receipt Date: 20090909
  Transmission Date: 20100115
  Serious: Yes (Death, Other)
  Sender: FDA-Public Use
  Company Number: FI-GENENTECH-290616

PATIENT
  Sex: Female

DRUGS (1)
  1. MABTHERA [Suspect]
     Indication: RHEUMATOID ARTHRITIS
     Dosage: 1000 MG, UNK
     Route: 042
     Dates: start: 20090107, end: 20090107

REACTIONS (6)
  - LARGE INTESTINE PERFORATION [None]
  - LEUKOPENIA [None]
  - MULTI-ORGAN FAILURE [None]
  - NEUTROPENIA [None]
  - SEPSIS [None]
  - THROMBOCYTOPENIA [None]
